FAERS Safety Report 5453955-0 (Version None)
Quarter: 2007Q3

REPORT INFORMATION
  Report Type: 
  Country: None (occurrence: None)
  Receive Date: 20070917
  Receipt Date: 20070709
  Transmission Date: 20080115
  Serious: Yes (Other)
  Sender: FDA-Public Use
  Company Number: US-ASTRAZENECA-2005UW13308

PATIENT
  Age: 485 Month
  Sex: Female
  Weight: 82.7 kg

DRUGS (2)
  1. SEROQUEL [Suspect]
     Indication: POST-TRAUMATIC STRESS DISORDER
     Route: 048
     Dates: start: 20021001
  2. SEROQUEL [Suspect]
     Indication: DEPRESSION
     Route: 048
     Dates: start: 20021001

REACTIONS (10)
  - DIABETES MELLITUS [None]
  - FATIGUE [None]
  - IMPAIRED HEALING [None]
  - MEMORY IMPAIRMENT [None]
  - PARAESTHESIA [None]
  - POLLAKIURIA [None]
  - PRURITUS [None]
  - SELF-INJURIOUS IDEATION [None]
  - SUICIDAL IDEATION [None]
  - WEIGHT INCREASED [None]
